FAERS Safety Report 5001339-1 (Version None)
Quarter: 2006Q2

REPORT INFORMATION
  Report Type: 
  Country: None (occurrence: None)
  Receive Date: 20060512
  Receipt Date: 20050414
  Transmission Date: 20061013
  Serious: Yes (Death)
  Sender: FDA-Public Use
  Company Number: US-MERCK-0504USA03108

PATIENT
  Age: 74 Year
  Sex: Female
  Weight: 70 kg

DRUGS (2)
  1. VIOXX [Suspect]
     Indication: ARTHRITIS
     Route: 048
     Dates: start: 20020801, end: 20021230
  2. CELEBREX [Concomitant]
     Route: 065
     Dates: start: 20020101, end: 20021230

REACTIONS (2)
  - CARDIO-RESPIRATORY ARREST [None]
  - HAEMORRHAGE INTRACRANIAL [None]
